FAERS Safety Report 21190393 (Version 1)
Quarter: 2022Q3

REPORT INFORMATION
  Report Type: Spontaneous
  Country: EC (occurrence: EC)
  Receive Date: 20220809
  Receipt Date: 20220809
  Transmission Date: 20221027
  Serious: Yes (Death)
  Sender: FDA-Public Use
  Company Number: EC-NOVARTISPH-NVSC2022EC179292

PATIENT
  Age: 32 Year
  Sex: Female

DRUGS (2)
  1. KISQALI [Suspect]
     Active Substance: RIBOCICLIB
     Indication: Breast cancer metastatic
     Dosage: UNK (BY MOUTH)
     Route: 048
  2. KISQALI [Suspect]
     Active Substance: RIBOCICLIB
     Indication: Breast cancer recurrent

REACTIONS (5)
  - Cardiac arrest [Fatal]
  - Breast cancer metastatic [Fatal]
  - Breast cancer recurrent [Fatal]
  - Malignant neoplasm progression [Fatal]
  - Asthenia [Unknown]
